FAERS Safety Report 24810534 (Version 1)
Quarter: 2025Q1

REPORT INFORMATION
  Report Type: Spontaneous
  Country: CN (occurrence: CN)
  Receive Date: 20250106
  Receipt Date: 20250106
  Transmission Date: 20250408
  Serious: Yes (Hospitalization)
  Sender: PFIZER
  Company Number: CN-PFIZER INC-PV202500000215

PATIENT
  Age: 2 Year
  Sex: Female
  Weight: 13 kg

DRUGS (2)
  1. GLIPIZIDE [Suspect]
     Active Substance: GLIPIZIDE
     Indication: Accidental exposure to product by child
     Dosage: 4 TABLETS, 1X/DAY
     Route: 048
     Dates: start: 20240925, end: 20240925
  2. FLUVASTATIN SODIUM [Suspect]
     Active Substance: FLUVASTATIN SODIUM
     Indication: Accidental exposure to product by child
     Dosage: 1 TABLET, 1X/DAY
     Route: 048
     Dates: start: 20240925, end: 20240925

REACTIONS (2)
  - Accidental exposure to product by child [Unknown]
  - Toxicity to various agents [Recovering/Resolving]

NARRATIVE: CASE EVENT DATE: 20240925
